FAERS Safety Report 14140796 (Version 1)
Quarter: 2017Q4

REPORT INFORMATION
  Report Type: Spontaneous
  Country: US (occurrence: US)
  Receive Date: 20171030
  Receipt Date: 20171030
  Transmission Date: 20180321
  Serious: Yes (Other)
  Sender: FDA-Public Use
  Company Number: US-SHIRE-US201724558

PATIENT
  Age: 45 Year
  Sex: Male

DRUGS (1)
  1. VYVANSE [Suspect]
     Active Substance: LISDEXAMFETAMINE DIMESYLATE
     Indication: BINGE EATING
     Dosage: 50 MG
     Route: 065

REACTIONS (2)
  - Impaired gastric emptying [Unknown]
  - Mood swings [Unknown]

NARRATIVE: CASE EVENT DATE: 20170907
